FAERS Safety Report 10992331 (Version 1)
Quarter: 2015Q2

REPORT INFORMATION
  Report Type: Spontaneous
  Country: US (occurrence: US)
  Receive Date: 20150406
  Receipt Date: 20150406
  Transmission Date: 20150821
  Serious: Yes (Other)
  Sender: FDA-Public Use
  Company Number: US-ELI_LILLY_AND_COMPANY-US201503009929

PATIENT
  Sex: Female

DRUGS (1)
  1. FORTEO [Suspect]
     Active Substance: TERIPARATIDE
     Indication: OSTEOPOROSIS
     Dosage: UNK, QD
     Route: 065
     Dates: start: 200510, end: 200710

REACTIONS (6)
  - Bone disorder [Unknown]
  - Spinal compression fracture [Unknown]
  - Rotator cuff syndrome [Unknown]
  - Bone density decreased [Unknown]
  - Paraesthesia [Unknown]
  - Nerve compression [Unknown]

NARRATIVE: CASE EVENT DATE: 2013
